FAERS Safety Report 22650001 (Version 1)
Quarter: 2023Q2

REPORT INFORMATION
  Report Type: Report from Study
  Country: US (occurrence: US)
  Receive Date: 20230628
  Receipt Date: 20230628
  Transmission Date: 20230721
  Serious: Yes (Other)
  Sender: FDA-Public Use
  Company Number: US-ABBVIE-5307105

PATIENT
  Sex: Female

DRUGS (1)
  1. SKYRIZI [Suspect]
     Active Substance: RISANKIZUMAB-RZAA
     Indication: Psoriasis
     Route: 058
     Dates: start: 20230524

REACTIONS (7)
  - Medical device implantation [Unknown]
  - Psoriasis [Not Recovered/Not Resolved]
  - Cataract [Unknown]
  - Eye laser surgery [Unknown]
  - Staphylococcal infection [Unknown]
  - Type 2 diabetes mellitus [Unknown]
  - Psoriatic arthropathy [Not Recovered/Not Resolved]

NARRATIVE: CASE EVENT DATE: 20230101
